FAERS Safety Report 7780864-4 (Version None)
Quarter: 2011Q3

REPORT INFORMATION
  Report Type: 
  Country: None (occurrence: None)
  Receive Date: 20110927
  Receipt Date: 20110915
  Transmission Date: 20111222
  Serious: Yes (Hospitalization)
  Sender: FDA-Public Use
  Company Number: JP-UCBSA-021913

PATIENT
  Age: 21 Year
  Sex: Female
  Weight: 60 kg

DRUGS (3)
  1. KEPPRA [Suspect]
     Route: 048
     Dates: start: 20110125
  2. KEPPRA [Suspect]
     Indication: EPILEPSY
     Route: 048
     Dates: start: 20101025, end: 20110124
  3. NO CONCOMITANT MEDICATION [Concomitant]

REACTIONS (5)
  - INTRAPARTUM HAEMORRHAGE [None]
  - ECZEMA [None]
  - MATERNAL EXPOSURE DURING PREGNANCY [None]
  - ANIMAL BITE [None]
  - PLATELET COUNT DECREASED [None]
